FAERS Safety Report 13376180 (Version 3)
Quarter: 2023Q4

REPORT INFORMATION
  Report Type: Spontaneous
  Country: US (occurrence: US)
  Receive Date: 20170328
  Receipt Date: 20231122
  Transmission Date: 20240110
  Serious: Yes (Life-Threatening, Hospitalization, Other)
  Sender: FDA-Public Use
  Company Number: US-AUROBINDO-AUR-APL-2017-31266

PATIENT
  Age: 14 Year
  Sex: Female

DRUGS (3)
  1. BUPROPION HYDROCHLORIDE [Suspect]
     Active Substance: BUPROPION HYDROCHLORIDE
     Indication: Product used for unknown indication
     Dosage: FATHER IMMEDIATELY CALLED FROM HOME TO TELL THAT 40 TABLETS OF BUPROPION WERE MISSING.
     Route: 048
     Dates: start: 201504
  2. CYCLOBENZAPRINE HYDROCHLORIDE [Suspect]
     Active Substance: CYCLOBENZAPRINE HYDROCHLORIDE
     Indication: Product used for unknown indication
     Dosage: 10 TAB.,FATHER IMMEDIATELY CALLED FROM HOME TO TELL THAT 10 TABLETS OF CYCLOBENZAPRINE WERE MISSING.
     Route: 065
  3. VENLAFAXINE [Suspect]
     Active Substance: VENLAFAXINE HYDROCHLORIDE
     Indication: Product used for unknown indication
     Dosage: 150 MG, FATHER IMMEDIATELY CALLED FROM HOME TO TELL THAT 10 TABLETS OF VENLAFAXINE WERE MISSING
     Route: 048
     Dates: start: 201504

REACTIONS (17)
  - Encephalopathy [Recovering/Resolving]
  - Serotonin syndrome [Recovering/Resolving]
  - Generalised tonic-clonic seizure [Recovering/Resolving]
  - Decorticate posture [Recovering/Resolving]
  - Leukocytosis [Recovering/Resolving]
  - Anaemia [Recovering/Resolving]
  - Intentional product misuse [Recovering/Resolving]
  - Atelectasis [Recovering/Resolving]
  - Unresponsive to stimuli [Recovering/Resolving]
  - Urinary incontinence [Recovered/Resolved]
  - Posturing [Recovered/Resolved]
  - Sinus tachycardia [Recovered/Resolved]
  - Mydriasis [Recovered/Resolved]
  - Hypothermia [Recovered/Resolved]
  - Tachycardia [Recovered/Resolved]
  - Suicide attempt [Recovered/Resolved]
  - Overdose [Recovered/Resolved]

NARRATIVE: CASE EVENT DATE: 20150401
